FAERS Safety Report 5651699-3 (Version None)
Quarter: 2008Q1

REPORT INFORMATION
  Report Type: 
  Country: None (occurrence: None)
  Receive Date: 20080305
  Receipt Date: 20080222
  Transmission Date: 20080703
  Serious: Yes (Hospitalization, Other)
  Sender: FDA-Public Use
  Company Number: FR-PFIZER INC-2005137724

PATIENT
  Sex: Male
  Weight: 8.5 kg

DRUGS (8)
  1. GENOTONORM [Suspect]
     Indication: HYPOPITUITARISM
     Dosage: DAILY DOSE:.3MG-FREQ:DAILY
     Route: 058
  2. CARBAMAZEPINE [Concomitant]
     Dosage: TEXT:1.5 TAB
  3. DESMOPRESSIN ACETATE [Concomitant]
  4. LEVOTHYROXINE SODIUM [Concomitant]
  5. HYDROCORTISONE [Concomitant]
  6. CLONAZEPAM [Concomitant]
  7. LAMOTRIGINE [Concomitant]
  8. FLUTICASONE PROPIONATE [Concomitant]
     Dosage: TEXT:50 X 2 /D

REACTIONS (2)
  - EPILEPSY [None]
  - NEOPLASM RECURRENCE [None]
